FAERS Safety Report 5133271-7 (Version None)
Quarter: 2006Q4

REPORT INFORMATION
  Report Type: 
  Country: None (occurrence: None)
  Receive Date: 20060831
  Receipt Date: 20060720
  Transmission Date: 20070319
  Serious: No
  Sender: FDA-Public Use
  Company Number: 2006-BP-08388BP

PATIENT
  Age: 83 Year
  Sex: Male

DRUGS (8)
  1. SPIRIVA [Suspect]
     Indication: CHRONIC OBSTRUCTIVE PULMONARY DISEASE
     Dosage: 18 MCG (18 MCG,1 CAPSULE DAILY),IH
     Dates: start: 20060417
  2. LIPITOR [Concomitant]
  3. ASPIRIN [Concomitant]
  4. NASONEX [Concomitant]
  5. LEVOTHYROXINE SODIUM [Concomitant]
  6. PREDNISONE TAB [Concomitant]
  7. METOPROLOL TARTRATE [Concomitant]
  8. ASMANEX TWISTHALER [Concomitant]

REACTIONS (1)
  - DYSPNOEA [None]
